FAERS Safety Report 7874262 (Version 2)
Quarter: 2020Q2

REPORT INFORMATION
  Report Type: Spontaneous
  Country: GB (occurrence: GB)
  Receive Date: 20110328
  Receipt Date: 20200610
  Transmission Date: 20200714
  Serious: Yes (Other)
  Sender: FDA-Public Use
  Company Number: GB-PFIZER INC-2011063855

PATIENT
  Sex: Male
  Weight: 35.4 kg

DRUGS (4)
  1. AMOXYCILLIN [Interacting]
     Active Substance: AMOXICILLIN
     Dosage: 500 MG, 2X/DAY
     Route: 048
  2. METRONIDAZOLE. [Suspect]
     Active Substance: METRONIDAZOLE
     Dosage: 400 MG, 2X/DAY
  3. SEROQUEL [Interacting]
     Active Substance: QUETIAPINE FUMARATE
     Indication: SCHIZOAFFECTIVE DISORDER
     Dosage: 300 MG, 2X/DAY
     Route: 048
     Dates: start: 2010
  4. SEROQUEL [Interacting]
     Active Substance: QUETIAPINE FUMARATE
     Dosage: 800 MG, DAILY

REACTIONS (8)
  - Suicidal ideation [Unknown]
  - Intentional overdose [Unknown]
  - Depressed mood [Unknown]
  - Delusion [Recovered/Resolved]
  - Drug interaction [Unknown]
  - Acute psychosis [Unknown]
  - Hallucination, auditory [Recovering/Resolving]
  - Hallucination [Recovered/Resolved]
